FAERS Safety Report 20607040 (Version 1)
Quarter: 2022Q1

REPORT INFORMATION
  Report Type: Spontaneous
  Country: CA (occurrence: CA)
  Receive Date: 20220317
  Receipt Date: 20220317
  Transmission Date: 20220423
  Serious: Yes (Hospitalization, Disabling)
  Sender: FDA-Public Use
  Company Number: CA-PFIZER INC-202200402490

PATIENT
  Age: 59 Year
  Sex: Male
  Weight: 108 kg

DRUGS (29)
  1. CYTARABINE [Suspect]
     Active Substance: CYTARABINE
     Indication: Acute lymphocytic leukaemia
     Dosage: 7400 MG 1 EVERY 12 HOURS
     Route: 041
  2. METHOTREXATE SODIUM [Suspect]
     Active Substance: METHOTREXATE SODIUM
     Indication: Acute lymphocytic leukaemia
     Dosage: 1 EVERY 12 HOURS
     Route: 037
  3. CYTARABINE [Suspect]
     Active Substance: CYTARABINE
     Indication: Acute lymphocytic leukaemia
     Dosage: 40 MG
     Route: 037
  4. ALLOPURINOL [Concomitant]
     Active Substance: ALLOPURINOL
     Dosage: UNK
  5. AMLODIPINE [Concomitant]
     Active Substance: AMLODIPINE BESYLATE
     Dosage: UNK
     Route: 065
  6. CALCIUM [Concomitant]
     Active Substance: CALCIUM
     Dosage: UNK
  7. DASATINIB [Concomitant]
     Active Substance: DASATINIB
     Dosage: UNK
  8. DECADRON [Concomitant]
     Active Substance: DEXAMETHASONE
     Dosage: UNK
  9. FLUCONAZOLE [Concomitant]
     Active Substance: FLUCONAZOLE
     Dosage: UNK
  10. FOLIC ACID [Concomitant]
     Active Substance: FOLIC ACID
     Dosage: UNK
  11. GLICLAZIDE [Concomitant]
     Active Substance: GLICLAZIDE
     Dosage: UNK
  12. HUMULIN NOS [Concomitant]
     Active Substance: INSULIN HUMAN
     Dosage: UNK
     Route: 030
  13. HYDROMORPHONE [Concomitant]
     Active Substance: HYDROMORPHONE
     Dosage: UNK
  14. POLYETHYLENE GLYCOL 3350 [Concomitant]
     Active Substance: POLYETHYLENE GLYCOL 3350
     Dosage: UNK
  15. LORAZEPAM [Concomitant]
     Active Substance: LORAZEPAM
     Dosage: UNK
     Route: 065
  16. METFORMIN [Concomitant]
     Active Substance: METFORMIN HYDROCHLORIDE
     Dosage: UNK
  17. NADOLOL [Concomitant]
     Active Substance: NADOLOL
     Dosage: UNK
  18. NIVESTYM [FILGRASTIM] [Concomitant]
     Dosage: UNK
  19. ONGLYZA [SAXAGLIPTIN] [Concomitant]
     Dosage: UNK
  20. PANTOPRAZOLE [Concomitant]
     Active Substance: PANTOPRAZOLE
     Dosage: UNK
  21. PRAMIPEXOLE [Concomitant]
     Active Substance: PRAMIPEXOLE
     Dosage: UNK
  22. PROCHLORPERAZINE [Concomitant]
     Active Substance: PROCHLORPERAZINE
     Dosage: UNK
  23. QUETIAPINE [Concomitant]
     Active Substance: QUETIAPINE
     Dosage: UNK
  24. RAMIPRIL [Concomitant]
     Active Substance: RAMIPRIL
     Dosage: UNK
     Route: 065
  25. ROSUVASTATIN [Concomitant]
     Active Substance: ROSUVASTATIN
     Dosage: UNK
     Route: 065
  26. ALBUTEROL [Concomitant]
     Active Substance: ALBUTEROL
     Dosage: UNK
  27. VENLAFAXINE HYDROCHLORIDE [Concomitant]
     Active Substance: VENLAFAXINE HYDROCHLORIDE
     Dosage: UNK
  28. VENOFER [Concomitant]
     Active Substance: IRON SUCROSE
     Dosage: UNK
  29. CHOLECALCIFEROL [Concomitant]
     Active Substance: CHOLECALCIFEROL
     Dosage: UNK

REACTIONS (11)
  - Acute kidney injury [Not Recovered/Not Resolved]
  - Bacteraemia [Not Recovered/Not Resolved]
  - Brain oedema [Not Recovered/Not Resolved]
  - Cerebellar syndrome [Not Recovered/Not Resolved]
  - Chorioretinitis [Not Recovered/Not Resolved]
  - Clostridium difficile infection [Not Recovered/Not Resolved]
  - Hepatotoxicity [Not Recovered/Not Resolved]
  - Neurotoxicity [Not Recovered/Not Resolved]
  - Pneumonia klebsiella [Not Recovered/Not Resolved]
  - Pyelonephritis acute [Not Recovered/Not Resolved]
  - Systemic candida [Not Recovered/Not Resolved]
